FAERS Safety Report 22642671 (Version 1)
Quarter: 2023Q2

REPORT INFORMATION
  Report Type: Spontaneous
  Country: US (occurrence: US)
  Receive Date: 20230627
  Receipt Date: 20230627
  Transmission Date: 20230722
  Serious: No
  Sender: FDA-Public Use
  Company Number: US-drreddys-SPO/USA/23/0165982

PATIENT
  Age: 66 Year
  Sex: Female

DRUGS (1)
  1. IBANDRONATE SODIUM [Suspect]
     Active Substance: IBANDRONATE SODIUM
     Indication: Acne
     Dates: start: 20230519

REACTIONS (8)
  - Pain [Unknown]
  - Oropharyngeal pain [Unknown]
  - Bone pain [Unknown]
  - Myalgia [Unknown]
  - Headache [Unknown]
  - Cough [Not Recovered/Not Resolved]
  - Chest discomfort [Unknown]
  - Product use in unapproved indication [Unknown]
